FAERS Safety Report 8444809-6 (Version None)
Quarter: 2012Q2

REPORT INFORMATION
  Report Type: 
  Country: None (occurrence: None)
  Receive Date: 20120618
  Receipt Date: 20120608
  Transmission Date: 20120825
  Serious: Yes (Hospitalization)
  Sender: FDA-Public Use
  Company Number: PHHY2011DE104728

PATIENT
  Sex: Male
  Weight: 80 kg

DRUGS (7)
  1. CLOPIDOGREL BISULFATE [Concomitant]
     Dosage: 75 MG, ONCE/SINGLE
     Route: 048
  2. EXFORGE [Concomitant]
     Indication: HYPERTENSION
     Dosage: 10 MG, ONCE/SINGLE
     Route: 048
  3. SANDOSTATIN LAR [Suspect]
     Indication: PANCREATIC NEUROENDOCRINE TUMOUR METASTATIC
     Dosage: 30 MG, ONCE IN EVERY 4 WEEKS
     Route: 030
  4. EXFORGE [Concomitant]
     Dosage: 10 MG AMLODIPINE/ 160 MG VALSARTA
  5. PANTOPRAZOLE [Concomitant]
     Dosage: 20 MG, BID
     Route: 048
  6. METOPROLOL SUCCINATE [Concomitant]
     Indication: HYPERTENSION
     Dosage: 47.5 MG, ONCE/SINGLE
     Route: 048
  7. MAGNESIUM [Concomitant]
     Dosage: 100 MG, BID

REACTIONS (15)
  - GENERAL PHYSICAL HEALTH DETERIORATION [None]
  - METASTASES TO LIVER [None]
  - HEPATIC MASS [None]
  - DIZZINESS [None]
  - OSTEOARTHRITIS [None]
  - OSTEOSCLEROSIS [None]
  - PROPIONIBACTERIUM INFECTION [None]
  - ASCITES [None]
  - NEUROLOGICAL SYMPTOM [None]
  - INFLAMMATORY MARKER INCREASED [None]
  - ARRHYTHMIA [None]
  - HYPOKALAEMIA [None]
  - AORTIC ARTERIOSCLEROSIS [None]
  - OSTEOPOROSIS [None]
  - GAIT DISTURBANCE [None]
